FAERS Safety Report 4659580-3 (Version None)
Quarter: 2005Q2

REPORT INFORMATION
  Report Type: 
  Country: None (occurrence: None)
  Receive Date: 20050412
  Receipt Date: 20050112
  Transmission Date: 20051028
  Serious: Yes (Hospitalization)
  Sender: FDA-Public Use
  Company Number: 2005S1000008

PATIENT
  Age: 24 Year
  Sex: Female
  Weight: 70 kg

DRUGS (13)
  1. CUBICIN [Suspect]
     Indication: CATHETER RELATED INFECTION
     Dosage: 600 MG; Q48H; IV
     Route: 042
     Dates: start: 20041228, end: 20050104
  2. CUBICIN [Suspect]
     Indication: ENDOCARDITIS
     Dosage: 600 MG; Q48H; IV
     Route: 042
     Dates: start: 20041228, end: 20050104
  3. CUBICIN [Suspect]
     Indication: STAPHYLOCOCCAL BACTERAEMIA
     Dosage: 600 MG; Q48H; IV
     Route: 042
     Dates: start: 20041228, end: 20050104
  4. EPOPROSTENOL [Concomitant]
  5. SEROQUEL [Concomitant]
  6. REMERON [Concomitant]
  7. PROTONIX [Concomitant]
  8. ULTRAM [Concomitant]
  9. FLEXERIL [Concomitant]
  10. VANCOMYCIN [Concomitant]
  11. LINEZOLID [Concomitant]
  12. HEPARIN [Concomitant]
  13. CIPROFLOXACIN [Concomitant]

REACTIONS (3)
  - BLOOD CREATINE PHOSPHOKINASE INCREASED [None]
  - MYALGIA [None]
  - MYOGLOBIN URINE PRESENT [None]
